FAERS Safety Report 17892298 (Version 2)
Quarter: 2020Q2

REPORT INFORMATION
  Report Type: Spontaneous
  Country: US (occurrence: US)
  Receive Date: 20200612
  Receipt Date: 20200617
  Transmission Date: 20200714
  Serious: No
  Sender: FDA-Public Use
  Company Number: NVSC2020US164707

PATIENT

DRUGS (2)
  1. PATADAY [Suspect]
     Active Substance: OLOPATADINE HYDROCHLORIDE
     Indication: OCULAR HYPERAEMIA
  2. PATADAY [Suspect]
     Active Substance: OLOPATADINE HYDROCHLORIDE
     Indication: EYE ALLERGY
     Dosage: 5 ML, BID
     Route: 047

REACTIONS (2)
  - Drug ineffective [Recovered/Resolved]
  - Eye pruritus [Recovered/Resolved]
